FAERS Safety Report 14609817 (Version 1)
Quarter: 2018Q1

REPORT INFORMATION
  Report Type: Spontaneous
  Country: ES (occurrence: ES)
  Receive Date: 20180307
  Receipt Date: 20180307
  Transmission Date: 20180509
  Serious: Yes (Hospitalization)
  Sender: FDA-Public Use
  Company Number: ES-TEVA-2018-ES-863905

PATIENT
  Age: 70 Year
  Sex: Male

DRUGS (7)
  1. ACETILSALICILICO ACIDO (176A) [Concomitant]
     Active Substance: ASPIRIN
     Dosage: 100 MG EVERY 24 HOURS
     Dates: start: 20170224, end: 20170303
  2. BEMIPARINA (2817A) [Concomitant]
     Dosage: 3500 UNITS EVERY 24 HOURS
     Dates: start: 20170224, end: 20170303
  3. ENALAPRIL (2142A) [Suspect]
     Active Substance: ENALAPRIL
     Dosage: 5 MG EVERY 12 HOURS
     Route: 065
     Dates: start: 20170224, end: 20170227
  4. PARACETAMOL (12A) [Concomitant]
     Active Substance: ACETAMINOPHEN
     Dosage: 1 GR EVERY 6 HOURS
     Dates: start: 20170224, end: 20170303
  5. CEFTRIAXONA (501A) [Concomitant]
     Active Substance: CEFTRIAXONE
     Dosage: 2 GR EVERY 24 HOURS
     Dates: start: 20170227, end: 20170303
  6. OMEPRAZOL (2141A) [Concomitant]
     Active Substance: OMEPRAZOLE
     Dosage: 20 MG EVERY 24 HOURS
     Dates: start: 20170224, end: 20170303
  7. METAMIZOL (111A) [Concomitant]
     Active Substance: METAMIZOL SODIUM
     Dosage: 575 MG ALTERNATES EVERY 6 HOURS
     Dates: start: 20170224, end: 20170303

REACTIONS (2)
  - Acute kidney injury [Recovered/Resolved]
  - Metabolic acidosis [Recovered/Resolved]

NARRATIVE: CASE EVENT DATE: 20170227
